FAERS Safety Report 17444519 (Version 1)
Quarter: 2020Q1

REPORT INFORMATION
  Report Type: Spontaneous
  Country: FR (occurrence: FR)
  Receive Date: 20200221
  Receipt Date: 20200221
  Transmission Date: 20200409
  Serious: Yes (Other)
  Sender: FDA-Public Use
  Company Number: FR-BAUSCH-BL-2020-005326

PATIENT
  Age: 43 Year
  Sex: Male

DRUGS (6)
  1. IBUPROFENE [Suspect]
     Active Substance: IBUPROFEN
     Indication: ODYNOPHAGIA
     Route: 065
     Dates: start: 20191017
  2. AERIUS (DESLORATADINE) [Suspect]
     Active Substance: DESLORATADINE
     Indication: PRURITUS
     Route: 061
     Dates: start: 20191017
  3. LOCOID [Suspect]
     Active Substance: HYDROCORTISONE BUTYRATE
     Indication: PRURITUS
     Route: 061
     Dates: start: 20191022
  4. MIOREL [THIOCOLCHICOSIDE] [Suspect]
     Active Substance: THIOCOLCHICOSIDE
     Indication: PAIN
     Route: 048
     Dates: start: 20191017
  5. ECONAZOLE. [Suspect]
     Active Substance: ECONAZOLE NITRATE
     Indication: PRURITUS
     Route: 061
     Dates: start: 20191017
  6. PIVALONE (NEOMYCIN SULFATE/POLYMYXIN B SULFATE/TIXOCORTOL PIVALATE) [Suspect]
     Active Substance: NEOMYCIN\POLYMYXIN B\TIXOCORTOL
     Indication: ODYNOPHAGIA
     Route: 055
     Dates: start: 20191017

REACTIONS (1)
  - Acute generalised exanthematous pustulosis [Recovered/Resolved]

NARRATIVE: CASE EVENT DATE: 20191025
